FAERS Safety Report 20050685 (Version 2)
Quarter: 2021Q4

REPORT INFORMATION
  Report Type: Spontaneous
  Country: CA (occurrence: CA)
  Receive Date: 20211109
  Receipt Date: 20211228
  Transmission Date: 20220303
  Serious: Yes (Death, Hospitalization, Other)
  Sender: FDA-Public Use
  Company Number: CA-CELLTRION INC.-2021CA003368

PATIENT

DRUGS (7)
  1. TRUXIMA [Suspect]
     Active Substance: RITUXIMAB-ABBS
     Indication: Immune thrombocytopenia
     Dosage: 770 MILLIGRAM
     Route: 042
     Dates: start: 20210311
  2. TRUXIMA [Suspect]
     Active Substance: RITUXIMAB-ABBS
     Dosage: 770 MG, INFUSION #1
     Route: 042
     Dates: start: 20210311
  3. TRUXIMA [Suspect]
     Active Substance: RITUXIMAB-ABBS
     Dosage: 770 MG, INFUSION #2
     Route: 042
     Dates: start: 20210311
  4. TRUXIMA [Suspect]
     Active Substance: RITUXIMAB-ABBS
     Dosage: 770 MG, INFUSION #2
     Route: 042
     Dates: start: 20210311
  5. DIPHENHYDRAMINE HYDROCHLORIDE [Concomitant]
     Active Substance: DIPHENHYDRAMINE HYDROCHLORIDE
     Indication: Premedication
  6. ACETAMINOPHEN [Concomitant]
     Active Substance: ACETAMINOPHEN
     Indication: Premedication
  7. BENADRYL [Concomitant]
     Active Substance: DIPHENHYDRAMINE HYDROCHLORIDE
     Indication: Premedication

REACTIONS (7)
  - Death [Fatal]
  - COVID-19 [Unknown]
  - Sinus arrhythmia [Unknown]
  - Swelling [Unknown]
  - Infusion site swelling [Unknown]
  - Infusion site pain [Unknown]
  - Off label use [Unknown]

NARRATIVE: CASE EVENT DATE: 20210311
